FAERS Safety Report 7542327-0 (Version None)
Quarter: 2011Q2

REPORT INFORMATION
  Report Type: 
  Country: None (occurrence: None)
  Receive Date: 20110613
  Receipt Date: 20110602
  Transmission Date: 20111010
  Serious: Yes (Other)
  Sender: FDA-Public Use
  Company Number: JP-ASTRAZENECA-2011SE35071

PATIENT
  Age: 60 Year
  Sex: Female

DRUGS (3)
  1. IRESSA [Suspect]
     Route: 048
     Dates: end: 20110501
  2. IRESSA [Suspect]
     Route: 048
  3. IRESSA [Suspect]
     Indication: NON-SMALL CELL LUNG CANCER
     Route: 048
     Dates: start: 20110201

REACTIONS (1)
  - LIVER DISORDER [None]
